FAERS Safety Report 6865258-8 (Version None)
Quarter: 2010Q3

REPORT INFORMATION
  Report Type: 
  Country: None (occurrence: None)
  Receive Date: 20100721
  Receipt Date: 20080418
  Transmission Date: 20110219
  Serious: No
  Sender: FDA-Public Use
  Company Number: US-PFIZER INC-2008035896

PATIENT
  Sex: Male
  Weight: 113.4 kg

DRUGS (7)
  1. CHANTIX [Suspect]
     Indication: SMOKING CESSATION THERAPY
     Dates: start: 20080201
  2. RISPERDAL [Concomitant]
     Indication: BIPOLAR DISORDER
  3. SEROQUEL [Concomitant]
     Indication: BIPOLAR DISORDER
  4. LITHIUM [Concomitant]
     Indication: BIPOLAR DISORDER
  5. WELLBUTRIN [Concomitant]
     Indication: BIPOLAR DISORDER
  6. LEXAPRO [Concomitant]
     Indication: BIPOLAR DISORDER
  7. NORVASC [Concomitant]
     Indication: HYPERTENSION

REACTIONS (1)
  - DEPRESSION [None]
